FAERS Safety Report 9431952 (Version 1)
Quarter: 2013Q3

REPORT INFORMATION
  Report Type: Spontaneous
  Country: TN (occurrence: TN)
  Receive Date: 20130731
  Receipt Date: 20130731
  Transmission Date: 20140515
  Serious: Yes (Other)
  Sender: FDA-Public Use
  Company Number: TN-BRISTOL-MYERS SQUIBB COMPANY-19152248

PATIENT
  Age: 57 Year
  Sex: Female

DRUGS (5)
  1. GLUCOPHAGE [Suspect]
  2. CHLOROTHIAZIDE [Suspect]
  3. TENSOPRIL [Suspect]
  4. DAONIL [Suspect]
  5. INSULATARD [Suspect]
     Dosage: INJECTION

REACTIONS (2)
  - Cholestasis [Recovering/Resolving]
  - Liver function test abnormal [Recovering/Resolving]
